FAERS Safety Report 18954383 (Version 1)
Quarter: 2021Q1

REPORT INFORMATION
  Report Type: Spontaneous
  Country: US (occurrence: US)
  Receive Date: 20210301
  Receipt Date: 20210301
  Transmission Date: 20210420
  Serious: No
  Sender: FDA-Public Use
  Company Number: US-AMNEAL PHARMACEUTICALS-2020-AMRX-03665

PATIENT
  Sex: Female

DRUGS (1)
  1. ESTRADIOL TRANSDERMAL SYSTEM [Suspect]
     Active Substance: ESTRADIOL
     Indication: MENOPAUSE
     Dosage: 1 DOSAGE FORM, 2 /WEEK
     Route: 062
     Dates: start: 202006, end: 202008

REACTIONS (7)
  - Therapeutic product ineffective [Unknown]
  - Fatigue [Recovered/Resolved]
  - Product substitution issue [Unknown]
  - Depression [Recovered/Resolved]
  - Feeling abnormal [Recovered/Resolved]
  - Blood oestrogen decreased [Recovered/Resolved]
  - Stress [Recovered/Resolved]

NARRATIVE: CASE EVENT DATE: 2020
